FAERS Safety Report 21500281 (Version 1)
Quarter: 2022Q4

REPORT INFORMATION
  Report Type: Spontaneous
  Country: US (occurrence: None)
  Receive Date: 20221024
  Receipt Date: 20221024
  Transmission Date: 20230113
  Serious: No
  Sender: FDA-Public Use
  Company Number: None

PATIENT
  Sex: Female

DRUGS (1)
  1. OPSUMIT [Suspect]
     Active Substance: MACITENTAN
     Indication: Pulmonary arterial hypertension
     Dosage: 10MG DAILY BY MOUTH
     Dates: start: 20220812

REACTIONS (5)
  - Dizziness [None]
  - Headache [None]
  - Flushing [None]
  - Diarrhoea [None]
  - Pain in jaw [None]
